FAERS Safety Report 15595340 (Version 1)
Quarter: 2018Q4

REPORT INFORMATION
  Report Type: Spontaneous
  Country: US (occurrence: US)
  Receive Date: 20181107
  Receipt Date: 20181107
  Transmission Date: 20190205
  Serious: Yes (Hospitalization)
  Sender: FDA-Public Use
  Company Number: US-CELGENEUS-USA-20181100325

PATIENT
  Sex: Male

DRUGS (3)
  1. POMALYST [Suspect]
     Active Substance: POMALIDOMIDE
     Indication: PLASMA CELL MYELOMA
     Dosage: 4 MILLIGRAM
     Route: 048
     Dates: start: 201806
  2. POMALYST [Suspect]
     Active Substance: POMALIDOMIDE
     Indication: OFF LABEL USE
     Dosage: 4 MILLIGRAM
     Route: 048
     Dates: start: 201507
  3. POMALYST [Suspect]
     Active Substance: POMALIDOMIDE
     Indication: MONOCLONAL GAMMOPATHY
     Dosage: 2 MILLIGRAM
     Route: 048
     Dates: start: 201504

REACTIONS (1)
  - Pneumonia [Unknown]
